FAERS Safety Report 8534219 (Version 4)
Quarter: 2013Q3

REPORT INFORMATION
  Report Type: Spontaneous
  Country: JP (occurrence: JP)
  Receive Date: 20120427
  Receipt Date: 20130705
  Transmission Date: 20140515
  Serious: Yes (Hospitalization)
  Sender: FDA-Public Use
  Company Number: JP-ELI_LILLY_AND_COMPANY-JP201204003639

PATIENT
  Age: 70 Year
  Sex: Male
  Weight: 70 kg

DRUGS (7)
  1. ALIMTA [Suspect]
     Indication: LUNG ADENOCARCINOMA RECURRENT
     Dosage: UNK
     Route: 042
     Dates: start: 20120302, end: 20120403
  2. CALONAL [Concomitant]
  3. PANVITAN                           /00466101/ [Concomitant]
     Route: 048
  4. OMERAP [Concomitant]
  5. OXINORM                            /00045603/ [Concomitant]
  6. NAUZELIN [Concomitant]
  7. METHYCOBAL [Concomitant]

REACTIONS (6)
  - C-reactive protein increased [Recovering/Resolving]
  - Pyrexia [Recovering/Resolving]
  - Hypersensitivity [Unknown]
  - Infection [Unknown]
  - Neutrophil count decreased [Unknown]
  - Creatinine renal clearance decreased [Unknown]
